FAERS Safety Report 22174437 (Version 2)
Quarter: 2023Q2

REPORT INFORMATION
  Report Type: Spontaneous
  Country: US (occurrence: US)
  Receive Date: 20230405
  Receipt Date: 20230421
  Transmission Date: 20230721
  Serious: No
  Sender: FDA-Public Use
  Company Number: US-AIMMUNE THERAPEUTICS, INC.-2023AIMT00294

PATIENT

DRUGS (4)
  1. PALFORZIA [Suspect]
     Active Substance: PEANUT
     Indication: Food allergy
     Dosage: IDE (0.5MG-6MG), ONCE
     Route: 048
     Dates: start: 202206, end: 202206
  2. PALFORZIA [Suspect]
     Active Substance: PEANUT
     Dosage: 160 MG, 1X/DAY
     Route: 048
     Dates: start: 20230307
  3. PALFORZIA [Suspect]
     Active Substance: PEANUT
     Dosage: 160 MG, ONCE, LAST DOSE PRIOR EVENTS
     Route: 048
     Dates: start: 202303, end: 202303
  4. ADDERALL [Concomitant]
     Active Substance: AMPHETAMINE ASPARTATE\AMPHETAMINE SULFATE\DEXTROAMPHETAMINE SACCHARATE\DEXTROAMPHETAMINE SULFATE
     Indication: Product used for unknown indication
     Dosage: 5 MG

REACTIONS (3)
  - Nasal congestion [Not Recovered/Not Resolved]
  - Illness [Unknown]
  - Rhinorrhoea [Not Recovered/Not Resolved]

NARRATIVE: CASE EVENT DATE: 20230301
